FAERS Safety Report 9178300 (Version 1)
Quarter: 2012Q4

REPORT INFORMATION
  Report Type: 
  Country: JP (occurrence: JP)
  Receive Date: 20121029
  Receipt Date: 20121029
  Transmission Date: 20130627
  Serious: Yes (Hospitalization)
  Sender: FDA-Public Use
  Company Number: JP-PFIZER INC-2012234844

PATIENT
  Age: 65 Year
  Sex: Female

DRUGS (6)
  1. HERBESSER [Suspect]
     Indication: ATRIAL FIBRILLATION
     Dosage: 60 mg, daily
     Route: 048
     Dates: end: 20120911
  2. CARDENALIN [Suspect]
     Dosage: 2 mg, daily
     Route: 048
     Dates: end: 20120911
  3. ASPENON [Suspect]
     Dosage: 40 mg, daily
     Route: 048
     Dates: end: 20120911
  4. ADALAT CR [Suspect]
     Dosage: 10 mg, daily
     Route: 048
     Dates: end: 20120911
  5. DIOVAN (VALSARTAN) [Suspect]
     Dosage: 80 mg, daily
     Route: 048
     Dates: end: 20120911
  6. ALFAROL [Concomitant]
     Dosage: UNK
     Route: 048

REACTIONS (1)
  - Agranulocytosis [Recovering/Resolving]
